FAERS Safety Report 10897094 (Version 2)
Quarter: 2015Q3

REPORT INFORMATION
  Report Type: Spontaneous
  Country: BR (occurrence: BR)
  Receive Date: 20150309
  Receipt Date: 20150910
  Transmission Date: 20151125
  Serious: Yes (Other)
  Sender: FDA-Public Use
  Company Number: BR-ABBVIE-15P-020-1357411-00

PATIENT
  Sex: Male
  Weight: 62 kg

DRUGS (7)
  1. LAMOTRIGINE. [Concomitant]
     Active Substance: LAMOTRIGINE
     Indication: EPILEPSY
     Dosage: DAILY DOSE: 200 MG, IN THE MORNING AND AT NIGHT
     Route: 048
  2. DEPAKOTE [Suspect]
     Active Substance: DIVALPROEX SODIUM
     Indication: SEIZURE
     Route: 048
     Dates: start: 2011, end: 2013
  3. ESCITALOPRAM [Concomitant]
     Active Substance: ESCITALOPRAM OXALATE
     Indication: DEPRESSION
     Route: 048
     Dates: start: 2013, end: 20150211
  4. DONAREN [Interacting]
     Active Substance: TRAZODONE HYDROCHLORIDE
     Indication: PRODUCT USED FOR UNKNOWN INDICATION
     Route: 065
     Dates: end: 201503
  5. DEPAKOTE ER [Interacting]
     Active Substance: DIVALPROEX SODIUM
     Indication: SEIZURE
     Dosage: DAILY DOSE: 2000MG, FOUR TABLETS PER DAY
     Route: 048
     Dates: start: 2013, end: 201504
  6. CITALOPRAM [Interacting]
     Active Substance: CITALOPRAM HYDROBROMIDE
     Indication: PRODUCT USED FOR UNKNOWN INDICATION
     Route: 065
     Dates: end: 201503
  7. DEPAKOTE ER [Interacting]
     Active Substance: DIVALPROEX SODIUM
     Dosage: DAILY DOSE: 1000 MG, IN THE MORNING AND AT NIGHT
     Route: 048
     Dates: start: 201504

REACTIONS (9)
  - Gait disturbance [Recovered/Resolved]
  - Drug interaction [Unknown]
  - Senile dementia [Not Recovered/Not Resolved]
  - Seizure [Recovered/Resolved]
  - Speech disorder [Recovered/Resolved]
  - Bedridden [Recovered/Resolved]
  - Blood glucose abnormal [Unknown]
  - Toxicity to various agents [Recovered/Resolved]
  - Diabetes mellitus [Not Recovered/Not Resolved]

NARRATIVE: CASE EVENT DATE: 2013
